FAERS Safety Report 6902791-4 (Version None)
Quarter: 2010Q3

REPORT INFORMATION
  Report Type: 
  Country: None (occurrence: None)
  Receive Date: 20100803
  Receipt Date: 20080617
  Transmission Date: 20110219
  Serious: Yes (Other)
  Sender: FDA-Public Use
  Company Number: US-PFIZER INC-2008050859

PATIENT
  Sex: Female
  Weight: 68 kg

DRUGS (7)
  1. LYRICA [Suspect]
     Indication: FIBROMYALGIA
     Route: 048
     Dates: start: 20080301
  2. DIGOXIN [Concomitant]
  3. PREDNISONE [Concomitant]
  4. PROPRANOLOL [Concomitant]
  5. ESTRATEST [Concomitant]
  6. EFFEXOR [Concomitant]
     Indication: DEPRESSION
  7. MELOXICAM [Concomitant]

REACTIONS (2)
  - DYSPHAGIA [None]
  - PHARYNGEAL OEDEMA [None]
